FAERS Safety Report 15546142 (Version 1)
Quarter: 2018Q4

REPORT INFORMATION
  Report Type: Spontaneous
  Country: US (occurrence: US)
  Receive Date: 20181017
  Receipt Date: 20181017
  Transmission Date: 20190205
  Serious: Yes (Disabling)
  Sender: FDA-Public Use
  Company Number: None

PATIENT
  Age: 21 Year
  Sex: Female
  Weight: 81.19 kg

DRUGS (19)
  1. DIGESTIVE ENZYMES ORAL CAPSULE [Concomitant]
  2. LIOTHYRONINE SODIUM. [Concomitant]
     Active Substance: LIOTHYRONINE SODIUM
  3. LORAZEPAM. [Concomitant]
     Active Substance: LORAZEPAM
  4. CHOLECALCIFEROL (VITAMIN D3) [Concomitant]
  5. CYCLOBENZAPRINE (CYCLOBENZAPRINE HYDROCHLORIDE) [Concomitant]
  6. HYPOTHALAMUS PMG [Concomitant]
  7. OXCARBAZEPINE (TRILEPTAL) [Concomitant]
  8. QUETIAPINE FUMARATE. [Concomitant]
     Active Substance: QUETIAPINE FUMARATE
  9. RIBONUCLEIC ACID [Concomitant]
     Active Substance: RIBONUCLEIC ACID
  10. ZYMEX II [Concomitant]
  11. DESVENLAFAXINE SUCCINATE. [Concomitant]
     Active Substance: DESVENLAFAXINE SUCCINATE
  12. PROPRANOLOL HCI [Concomitant]
  13. CLONAZEPAM. [Concomitant]
     Active Substance: CLONAZEPAM
  14. DEXTROAMPHETAMINE (DEXTROAMPHETAMINE SULFATE) [Concomitant]
  15. DEXTROAMPHETAMINE SULFATE (DEXTROAMPHETAMINE SULFATE ER) [Concomitant]
  16. DESVENLAFAXINE. [Suspect]
     Active Substance: DESVENLAFAXINE
     Indication: DEPRESSION
     Dosage: ?          QUANTITY:100 MG MILLIGRAM(S);?
     Dates: start: 20161130, end: 20170306
  17. NORGESTIMATE-ETHINYL ESTRADIOL (ORTHO-CYCLEN (28)) [Concomitant]
  18. DEXTROAMPHETAMINE (DEXTROAMPHETAMINE SULFATE) [Concomitant]
  19. LEVOTHYROXINE SODIUM. [Concomitant]
     Active Substance: LEVOTHYROXINE SODIUM

REACTIONS (2)
  - Depression [None]
  - Insurance issue [None]

NARRATIVE: CASE EVENT DATE: 20180616
